FAERS Safety Report 23722689 (Version 1)
Quarter: 2024Q2

REPORT INFORMATION
  Report Type: Spontaneous
  Country: CN (occurrence: CN)
  Receive Date: 20240409
  Receipt Date: 20240409
  Transmission Date: 20240716
  Serious: Yes (Hospitalization)
  Sender: FDA-Public Use
  Company Number: CN-SHANGHAI JUNSHI BIOSCIENCES CO., LTD.-CN2024009627

PATIENT

DRUGS (5)
  1. TORIPALIMAB [Suspect]
     Active Substance: TORIPALIMAB
     Indication: Lip and/or oral cavity cancer
     Dosage: 240 MG, Q3WEEKS
     Route: 041
     Dates: start: 20240127, end: 20240127
  2. TORIPALIMAB [Suspect]
     Active Substance: TORIPALIMAB
     Dosage: 240 MG (D1), Q3W
     Route: 041
  3. DOCETAXEL [Suspect]
     Active Substance: DOCETAXEL\DOCETAXEL ANHYDROUS
     Indication: Lip and/or oral cavity cancer
     Dosage: 90 MG, 60 MG/M^2, D1
     Dates: start: 20240126, end: 20240127
  4. NEDAPLATIN [Suspect]
     Active Substance: NEDAPLATIN
     Indication: Lip and/or oral cavity cancer
     Dosage: 90 MG (60 MG/M^2, D1)
     Route: 041
     Dates: start: 20240126, end: 20240127
  5. ERBITUX [Suspect]
     Active Substance: CETUXIMAB
     Indication: Lip and/or oral cavity cancer
     Dosage: 400 MG (FIRST 400 MG/M^2, FOLLOWED BY 250 MG/M^2)
     Route: 041
     Dates: start: 20240125, end: 20240127

REACTIONS (2)
  - Myelosuppression [Recovering/Resolving]
  - Off label use [Unknown]

NARRATIVE: CASE EVENT DATE: 20240127
